FAERS Safety Report 9285294 (Version 1)
Quarter: 2013Q2

REPORT INFORMATION
  Report Type: Spontaneous
  Country: GB (occurrence: None)
  Receive Date: 20130507
  Receipt Date: 20130507
  Transmission Date: 20140414
  Serious: Yes (Life-Threatening, Hospitalization)
  Sender: FDA-Public Use
  Company Number: GER/UKI/13/0029366

PATIENT
  Age: 76 Year
  Sex: Female
  Weight: 56 kg

DRUGS (17)
  1. DONEPEZIL [Suspect]
     Indication: DEMENTIA ALZHEIMER^S TYPE
     Route: 048
     Dates: end: 20130317
  2. BISOPROLOL [Suspect]
     Indication: ACUTE MYOCARDIAL INFARCTION
     Route: 048
     Dates: start: 20130312, end: 20130315
  3. BRILIQUE [Suspect]
     Indication: ACUTE MYOCARDIAL INFARCTION
     Route: 048
     Dates: start: 20130312
  4. AMLODIPINE (AMLODIPINE BESILATE) [Concomitant]
  5. ASPIRIN (ACETYLSALICYLIC ACID) [Concomitant]
  6. ATORVASTATIN (ATORVASTATIN CALCIUM) [Concomitant]
  7. BENDROFLUMETHIAZIDE (BENDROFLUMETHIAZIDE) [Concomitant]
  8. ENOXAPARIN (ENOXAPARIN SODIUM) [Concomitant]
  9. FERROUS SULPHATE (FERROUS SULFATE) [Concomitant]
  10. FOLIC ACID (FOLIC ACID) [Concomitant]
  11. GLYCERYL TRINITRATE (GLYCERYL TRINITRATE) [Concomitant]
  12. LEVOTHYROXINE (LEVOTHYROXINE SODIUM) [Concomitant]
  13. NITROFURANTOIN [Concomitant]
  14. OMACOR (OMEGA-3 MARINE TRIGLYCERIDES) [Concomitant]
  15. PARACETAMOL (PARACETAMOL) [Concomitant]
  16. RAMIPRIL (RAMIPRIL) [Concomitant]
  17. SODIUM BICARBONATE (SODIUM BICARBONATE) [Concomitant]

REACTIONS (5)
  - Atrioventricular block first degree [None]
  - Bradycardia [None]
  - Syncope [None]
  - Unresponsive to stimuli [None]
  - Cardiac arrest [None]
